FAERS Safety Report 6869020-1 (Version None)
Quarter: 2010Q3

REPORT INFORMATION
  Report Type: 
  Country: None (occurrence: None)
  Receive Date: 20100722
  Receipt Date: 20080627
  Transmission Date: 20110219
  Serious: No
  Sender: FDA-Public Use
  Company Number: US-PFIZER INC-2008054703

PATIENT
  Sex: Female
  Weight: 56.7 kg

DRUGS (1)
  1. CHANTIX [Suspect]
     Indication: SMOKING CESSATION THERAPY
     Route: 048
     Dates: start: 20080601

REACTIONS (5)
  - DRUG DOSE OMISSION [None]
  - HEADACHE [None]
  - HYPERPHAGIA [None]
  - NAUSEA [None]
  - PARAESTHESIA [None]
